FAERS Safety Report 26105444 (Version 1)
Quarter: 2025Q4

REPORT INFORMATION
  Report Type: Spontaneous
  Country: CH (occurrence: CH)
  Receive Date: 20251201
  Receipt Date: 20251201
  Transmission Date: 20260117
  Serious: Yes (Death, Other)
  Sender: EPIC PHARM
  Company Number: CH-EPICPHARMA-CH-2025EPCLIT01237

PATIENT
  Age: 20 Year
  Sex: Male

DRUGS (2)
  1. AMPHETAMINE SULFATE [Suspect]
     Active Substance: AMPHETAMINE SULFATE
     Indication: Product used for unknown indication
     Route: 065
  2. CLONAZEPAM [Suspect]
     Active Substance: CLONAZEPAM
     Indication: Product used for unknown indication
     Route: 065

REACTIONS (7)
  - Respiratory depression [Fatal]
  - Brain oedema [Fatal]
  - Pulmonary oedema [Fatal]
  - Aspiration [Fatal]
  - Gastric haemorrhage [Fatal]
  - Toxicity to various agents [Fatal]
  - Bladder dilatation [Fatal]
